FAERS Safety Report 4319544-6 (Version None)
Quarter: 2004Q1

REPORT INFORMATION
  Report Type: 
  Country: None (occurrence: None)
  Receive Date: 20040316
  Receipt Date: 20040301
  Transmission Date: 20041129
  Serious: Yes (Hospitalization)
  Sender: FDA-Public Use
  Company Number: 182335

PATIENT
  Age: 59 Year
  Sex: Male
  Weight: 72.5755 kg

DRUGS (19)
  1. AVONEX [Suspect]
     Indication: MULTIPLE SCLEROSIS
     Dates: start: 20020101, end: 20030901
  2. AVONEX [Suspect]
     Indication: MULTIPLE SCLEROSIS
     Dosage: 30 MCG QW IM
     Route: 030
     Dates: start: 20030901
  3. QUININE [Concomitant]
  4. AVANDIA [Concomitant]
  5. ZYRTEC [Concomitant]
  6. CLORZOXAZONE [Concomitant]
  7. NEURONTIN [Concomitant]
  8. AXID [Concomitant]
  9. NAPROXEN [Concomitant]
  10. LOTREL [Concomitant]
  11. AVALIDE [Concomitant]
  12. XANAX [Concomitant]
  13. LANTUS [Concomitant]
  14. GLUCOVANCE [Concomitant]
  15. ASPIRIN [Concomitant]
  16. THEOPHYLLINE [Concomitant]
  17. AGGRENOX [Concomitant]
  18. AMBIEN [Concomitant]
  19. LORATADINE [Concomitant]

REACTIONS (9)
  - BLOOD GLUCOSE INCREASED [None]
  - BLOOD PRESSURE INCREASED [None]
  - DEVICE FAILURE [None]
  - DISEASE RECURRENCE [None]
  - DYSPHAGIA [None]
  - INJECTION SITE PAIN [None]
  - PROSTATIC DISORDER [None]
  - RESIDUAL URINE VOLUME [None]
  - WEIGHT DECREASED [None]
